FAERS Safety Report 7384808-9 (Version None)
Quarter: 2011Q1

REPORT INFORMATION
  Report Type: 
  Country: None (occurrence: None)
  Receive Date: 20110330
  Receipt Date: 20101227
  Transmission Date: 20110831
  Serious: Yes (Other)
  Sender: FDA-Public Use
  Company Number: US-BAYER-201014830NA

PATIENT
  Sex: Female
  Weight: 68.027 kg

DRUGS (3)
  1. YASMIN [Suspect]
     Indication: CONTRACEPTION
     Dosage: AS USED DOSE: UNK
     Route: 048
     Dates: start: 20020101, end: 20080501
  2. IBUPROFEN [Concomitant]
     Dosage: 800 MG, PRN
     Dates: start: 20020101, end: 20080101
  3. YASMIN [Suspect]
     Indication: MENSTRUATION IRREGULAR

REACTIONS (3)
  - GALLBLADDER PAIN [None]
  - CHOLELITHIASIS [None]
  - BILIARY COLIC [None]
